FAERS Safety Report 7902310-X (Version None)
Quarter: 2011Q4

REPORT INFORMATION
  Report Type: 
  Country: None (occurrence: None)
  Receive Date: 20111108
  Receipt Date: 20111101
  Transmission Date: 20120403
  Serious: Yes (Hospitalization, Other)
  Sender: FDA-Public Use
  Company Number: US-ACTELION-A-US2011-48178

PATIENT

DRUGS (3)
  1. TRACLEER [Suspect]
     Indication: PULMONARY ARTERIAL HYPERTENSION
     Dosage: UNK
     Route: 048
     Dates: start: 20110310
  2. REVATIO [Concomitant]
  3. CALCIUM CHANNEL BLOCKERS [Concomitant]

REACTIONS (8)
  - CLOSTRIDIAL INFECTION [None]
  - FATIGUE [None]
  - SYNCOPE [None]
  - CARDIAC ENZYMES INCREASED [None]
  - CARDIAC DISORDER [None]
  - DIARRHOEA [None]
  - DYSPNOEA [None]
  - PULMONARY FIBROSIS [None]
